FAERS Safety Report 17802003 (Version 1)
Quarter: 2020Q2

REPORT INFORMATION
  Report Type: Spontaneous
  Country: US (occurrence: US)
  Receive Date: 20200518
  Receipt Date: 20200518
  Transmission Date: 20200714
  Serious: Yes (Other)
  Sender: FDA-Public Use
  Company Number: None

PATIENT
  Sex: Female
  Weight: 63.9 kg

DRUGS (2)
  1. INCRUSE ELLIPTA [Suspect]
     Active Substance: UMECLIDINIUM BROMIDE
  2. FLOVENT [Suspect]
     Active Substance: FLUTICASONE PROPIONATE

REACTIONS (4)
  - Confusional state [None]
  - Dyspnoea [None]
  - Urinary retention [None]
  - Product substitution issue [None]
